FAERS Safety Report 11632448 (Version 1)
Quarter: 2015Q4

REPORT INFORMATION
  Report Type: Spontaneous
  Country: US (occurrence: None)
  Receive Date: 20151014
  Receipt Date: 20151014
  Transmission Date: 20160304
  Serious: Yes (Hospitalization)
  Sender: FDA-Public Use
  Company Number: None

PATIENT
  Age: 69 Year
  Sex: Male
  Weight: 83.2 kg

DRUGS (2)
  1. LIDOCAINE. [Suspect]
     Active Substance: LIDOCAINE
     Indication: PAIN
     Dosage: 5 ML, OTHER?
     Dates: start: 20150708, end: 20150708
  2. METHYLPREDNISOLONE. [Suspect]
     Active Substance: METHYLPREDNISOLONE
     Indication: PAIN
     Dosage: 40 MG, OTHER?
     Dates: start: 20150708, end: 20150708

REACTIONS (11)
  - Anaphylactic reaction [None]
  - Tremor [None]
  - Limb discomfort [None]
  - Urticaria [None]
  - Back pain [None]
  - Pruritus [None]
  - Hypotension [None]
  - Dizziness [None]
  - Abdominal pain [None]
  - Rash [None]
  - Hypoaesthesia [None]

NARRATIVE: CASE EVENT DATE: 20150708
